FAERS Safety Report 8134539-2 (Version None)
Quarter: 2012Q1

REPORT INFORMATION
  Report Type: 
  Country: None (occurrence: None)
  Receive Date: 20120214
  Receipt Date: 20120208
  Transmission Date: 20120608
  Serious: Yes (Other)
  Sender: FDA-Public Use
  Company Number: SE-PFIZER INC-2012033874

PATIENT
  Age: 41 Year
  Sex: Male

DRUGS (4)
  1. ALVEDON [Concomitant]
     Dosage: UNK
  2. TERRA-CORTRIL POLYMYXIN B [Suspect]
     Indication: ECZEMA
     Dosage: UNK
     Dates: start: 20111006, end: 20111010
  3. DIMETICONE [Concomitant]
     Dosage: UNK
  4. TRAMADOL [Concomitant]
     Dosage: UNK

REACTIONS (2)
  - TINNITUS [None]
  - DEPRESSION [None]
